FAERS Safety Report 8500245-5 (Version None)
Quarter: 2012Q3

REPORT INFORMATION
  Report Type: 
  Country: None (occurrence: None)
  Receive Date: 20120710
  Receipt Date: 20120706
  Transmission Date: 20120928
  Serious: Yes (Disabling)
  Sender: FDA-Public Use
  Company Number: PHHY2012GB058215

PATIENT
  Age: 47 Year
  Sex: Female
  Weight: 109.3 kg

DRUGS (20)
  1. CODEINE PHOSPHATE [Concomitant]
     Dates: start: 20120524, end: 20120607
  2. ATENOLOL [Concomitant]
     Dates: start: 20120412
  3. CYCLIZINE [Concomitant]
     Dates: start: 20120419, end: 20120517
  4. TRAMADOL HCL [Concomitant]
     Dates: start: 20120412, end: 20120510
  5. NOVOLOG MIX 70/30 [Concomitant]
     Dates: start: 20120522
  6. TEMAZEPAM [Concomitant]
     Dates: start: 20120403, end: 20120404
  7. WARFARIN SODIUM [Concomitant]
     Dates: start: 20120412
  8. ESOMEPRAZOLE [Concomitant]
     Dates: start: 20120412
  9. AMITRIPTYLINE HCL [Concomitant]
     Dates: start: 20120330
  10. PROCHLORPERAZINE [Concomitant]
     Dates: start: 20120524
  11. METRONIDAZOLE [Suspect]
     Indication: URINARY TRACT INFECTION
     Dosage: 400 MG, TID
     Dates: start: 20120607, end: 20120614
  12. MULTI-VITAMINS [Concomitant]
     Dates: start: 20120412
  13. EXENATIDE [Concomitant]
     Dates: start: 20120312
  14. FLUTICASONE PROPIONATE/SALMETEROL [Concomitant]
     Dates: start: 20120412, end: 20120510
  15. SITAGLIPTIN [Concomitant]
     Dates: start: 20120305
  16. TRIMETHOPRIM [Concomitant]
     Dates: start: 20120608, end: 20120613
  17. VENTOLIN [Concomitant]
     Dates: start: 20120412, end: 20120510
  18. DIAZEPAM [Concomitant]
     Dates: start: 20120330
  19. FLUCLOXACILLIN [Concomitant]
     Dates: start: 20120328, end: 20120329
  20. INADINE [Concomitant]
     Dates: start: 20120314, end: 20120411

REACTIONS (2)
  - ASTHMA [None]
  - DYSPNOEA [None]
